FAERS Safety Report 20902015 (Version 1)
Quarter: 2022Q2

REPORT INFORMATION
  Report Type: Spontaneous
  Country: DZ (occurrence: DZ)
  Receive Date: 20220601
  Receipt Date: 20220601
  Transmission Date: 20220721
  Serious: Yes (Other)
  Sender: FDA-Public Use
  Company Number: DZ-SA-2022SA193925

PATIENT

DRUGS (1)
  1. DOCETAXEL [Suspect]
     Active Substance: DOCETAXEL
     Dosage: INJECTION
     Route: 065

REACTIONS (5)
  - Deafness [Unknown]
  - Hypersensitivity [Unknown]
  - Dyspnoea [Unknown]
  - Chest discomfort [Unknown]
  - Bone pain [Unknown]
